FAERS Safety Report 6277737-5 (Version None)
Quarter: 2009Q3

REPORT INFORMATION
  Report Type: 
  Country: None (occurrence: None)
  Receive Date: 20090722
  Receipt Date: 20090716
  Transmission Date: 20100115
  Serious: Yes (Hospitalization)
  Sender: FDA-Public Use
  Company Number: B0558913A

PATIENT
  Sex: Male

DRUGS (13)
  1. EPIVIR [Suspect]
     Indication: HIV INFECTION
     Dosage: 10ML PER DAY
     Route: 048
     Dates: start: 20081220
  2. ZIAGEN [Suspect]
     Indication: HIV INFECTION
     Dosage: 300MG TWICE PER DAY
     Route: 048
     Dates: start: 20081220
  3. PREDNISONE TAB [Suspect]
     Indication: THROMBOTIC MICROANGIOPATHY
     Route: 048
     Dates: start: 20081226
  4. KALETRA [Suspect]
     Indication: HIV INFECTION
     Dosage: 4TAB PER DAY
     Route: 048
     Dates: start: 20081220
  5. ESIDRIX [Suspect]
     Dosage: 25MG PER DAY
     Route: 048
     Dates: start: 20090121
  6. LASIX [Suspect]
     Dosage: 40MG PER DAY
     Route: 048
     Dates: start: 20090119
  7. ATENOLOL [Concomitant]
     Dosage: 50MG PER DAY
     Route: 065
  8. EUPRESSYL [Concomitant]
     Dosage: 180MG PER DAY
     Route: 065
  9. AMLODIPINE [Concomitant]
     Dosage: 10MG PER DAY
     Route: 065
  10. FLAGYL [Concomitant]
     Dosage: 3TAB PER DAY
     Route: 065
  11. PANTOPRAZOLE SODIUM [Concomitant]
     Dosage: 20MG PER DAY
     Route: 065
  12. HYPERIUM [Concomitant]
     Dosage: 1MG PER DAY
     Route: 065
     Dates: start: 20090119
  13. COVERSYL [Concomitant]
     Route: 065

REACTIONS (5)
  - DIABETES MELLITUS [None]
  - HYPERGLYCAEMIA [None]
  - HYPONATRAEMIA [None]
  - POLYDIPSIA [None]
  - POLYURIA [None]
